FAERS Safety Report 5333572-3 (Version None)
Quarter: 2007Q2

REPORT INFORMATION
  Report Type: 
  Country: None (occurrence: None)
  Receive Date: 20070521
  Receipt Date: 20070515
  Transmission Date: 20071010
  Serious: Yes (Life-Threatening, Hospitalization)
  Sender: FDA-Public Use
  Company Number: 2002-04-1499

PATIENT
  Age: 51 Year
  Sex: Female
  Weight: 95.2554 kg

DRUGS (6)
  1. PEG-INTRON [Suspect]
     Indication: HEPATITIS C
     Dosage: 96 MCG; QW; SC
     Route: 058
     Dates: start: 20011226, end: 20020408
  2. REBETOL [Suspect]
     Indication: HEPATITIS C
     Dosage: SEE IMAGE
     Route: 048
     Dates: start: 20011226, end: 20020301
  3. REBETOL [Suspect]
     Indication: HEPATITIS C
     Dosage: SEE IMAGE
     Route: 048
     Dates: start: 20020301, end: 20020408
  4. NAPROSYN [Concomitant]
  5. CLARITIN [Concomitant]
  6. VALIUM [Concomitant]

REACTIONS (17)
  - BACK PAIN [None]
  - CHOLELITHIASIS [None]
  - CORYNEBACTERIUM INFECTION [None]
  - DISSEMINATED INTRAVASCULAR COAGULATION [None]
  - GROIN ABSCESS [None]
  - HEADACHE [None]
  - HYPOAESTHESIA [None]
  - IDIOPATHIC THROMBOCYTOPENIC PURPURA [None]
  - MARROW HYPERPLASIA [None]
  - MICROANGIOPATHIC HAEMOLYTIC ANAEMIA [None]
  - NEUTROPENIA [None]
  - RETICULOCYTOSIS [None]
  - SEPSIS [None]
  - SINUSITIS [None]
  - STAPHYLOCOCCAL INFECTION [None]
  - TRANSIENT ISCHAEMIC ATTACK [None]
  - VISION BLURRED [None]
